FAERS Safety Report 18676696 (Version 1)
Quarter: 2020Q4

REPORT INFORMATION
  Report Type: Spontaneous
  Country: US (occurrence: US)
  Receive Date: 20201229
  Receipt Date: 20201229
  Transmission Date: 20210114
  Serious: Yes (Other)
  Sender: FDA-Public Use
  Company Number: US-PFIZER INC-2020509169

PATIENT
  Age: 77 Year
  Sex: Female
  Weight: 90.72 kg

DRUGS (1)
  1. QUINAPRIL. [Suspect]
     Active Substance: QUINAPRIL
     Indication: BLOOD PRESSURE MEASUREMENT
     Dosage: 40 MG, DAILY (SWALLOWED IT DAILY)
     Dates: start: 20201201, end: 202012

REACTIONS (7)
  - Stress [Unknown]
  - Chest discomfort [Recovered/Resolved]
  - Cerebrovascular accident [Unknown]
  - Drug hypersensitivity [Unknown]
  - Headache [Recovered/Resolved]
  - Hypertension [Unknown]
  - Pruritus [Recovered/Resolved]

NARRATIVE: CASE EVENT DATE: 202012
